FAERS Safety Report 8291895-2 (Version None)
Quarter: 2012Q2

REPORT INFORMATION
  Report Type: 
  Country: None (occurrence: None)
  Receive Date: 20120417
  Receipt Date: 20110823
  Transmission Date: 20120825
  Serious: No
  Sender: FDA-Public Use
  Company Number: US-ASTRAZENECA-2010SE40465

PATIENT
  Age: 72 Year
  Sex: Female

DRUGS (1)
  1. NEXIUM [Suspect]
     Indication: GASTROOESOPHAGEAL REFLUX DISEASE
     Route: 048
     Dates: start: 20100901

REACTIONS (9)
  - DRUG DOSE OMISSION [None]
  - ABDOMINAL DISCOMFORT [None]
  - DYSPHONIA [None]
  - VIRAL INFECTION [None]
  - THROAT IRRITATION [None]
  - MALAISE [None]
  - GASTROOESOPHAGEAL REFLUX DISEASE [None]
  - FALL [None]
  - APHONIA [None]
